FAERS Safety Report 6416624-6 (Version None)
Quarter: 2009Q4

REPORT INFORMATION
  Report Type: 
  Country: None (occurrence: None)
  Receive Date: 20091022
  Receipt Date: 20091020
  Transmission Date: 20100525
  Serious: Yes (Life-Threatening, Hospitalization)
  Sender: FDA-Public Use
  Company Number: 20096254

PATIENT
  Age: 46 Year
  Sex: Female

DRUGS (10)
  1. LIORESAL [Suspect]
     Indication: MUSCLE SPASTICITY
     Dosage: DAILY, INTRATHECAL
     Route: 037
  2. DILAUDID [Concomitant]
  3. ORAL BACLOFEN [Concomitant]
  4. MORPHINE [Concomitant]
  5. NORCO [Concomitant]
  6. CARDIZEM [Concomitant]
  7. NEXIUM [Concomitant]
  8. SINGULAIR [Concomitant]
  9. CLONAZEPAM [Concomitant]
  10. GLYBURIDE [Concomitant]

REACTIONS (22)
  - ABASIA [None]
  - ASTHENIA [None]
  - BALANCE DISORDER [None]
  - BODY TEMPERATURE INCREASED [None]
  - CARPAL TUNNEL SYNDROME [None]
  - CONSTIPATION [None]
  - DEVICE BREAKAGE [None]
  - DIZZINESS [None]
  - DYSARTHRIA [None]
  - EYE ROLLING [None]
  - GASTROOESOPHAGEAL REFLUX DISEASE [None]
  - HYPOAESTHESIA [None]
  - MALAISE [None]
  - MEDICAL DEVICE COMPLICATION [None]
  - MULTIPLE DRUG OVERDOSE [None]
  - MYALGIA [None]
  - NASOPHARYNGITIS [None]
  - PRODUCTIVE COUGH [None]
  - PRURITUS GENERALISED [None]
  - SEDATION [None]
  - SOMNOLENCE [None]
  - SPEECH DISORDER [None]
